FAERS Safety Report 25431186 (Version 1)
Quarter: 2025Q2

REPORT INFORMATION
  Report Type: Report from Study
  Country: CA (occurrence: CA)
  Receive Date: 20250613
  Receipt Date: 20250613
  Transmission Date: 20250717
  Serious: Yes (Other)
  Sender: ABBVIE
  Company Number: CA-ABBVIE-6318070

PATIENT
  Sex: Female

DRUGS (1)
  1. SKYRIZI [Suspect]
     Active Substance: RISANKIZUMAB-RZAA
     Indication: Crohn^s disease
     Route: 058
     Dates: end: 202504

REACTIONS (5)
  - Macular degeneration [Unknown]
  - Diarrhoea [Unknown]
  - Arthralgia [Unknown]
  - Dry eye [Unknown]
  - Feeling abnormal [Unknown]
